FAERS Safety Report 25228742 (Version 4)
Quarter: 2025Q2

REPORT INFORMATION
  Report Type: Report from Study
  Country: US (occurrence: US)
  Receive Date: 20250423
  Receipt Date: 20250502
  Transmission Date: 20250717
  Serious: No
  Sender: SANDOZ
  Company Number: US-SANDOZ-SDZ2025US000416

PATIENT
  Age: 13 Year
  Sex: Female

DRUGS (6)
  1. OMNITROPE [Suspect]
     Active Substance: SOMATROPIN
     Dosage: 0.40 ML, QD
     Route: 058
     Dates: start: 20250316
  2. OMNITROPE [Suspect]
     Active Substance: SOMATROPIN
     Dosage: 0.40 ML, QD
     Route: 058
     Dates: start: 20250316
  3. OMNITROPE [Suspect]
     Active Substance: SOMATROPIN
     Indication: Hypopituitarism
     Dosage: 1.8 MG, QD
     Route: 065
     Dates: start: 20241218
  4. OMNITROPE [Suspect]
     Active Substance: SOMATROPIN
     Indication: Hypopituitarism
     Dosage: 1.8 MG, QD
     Route: 065
     Dates: start: 20241218
  5. OMNITROPE [Suspect]
     Active Substance: SOMATROPIN
     Route: 065
     Dates: start: 20241218
  6. OMNITROPE [Suspect]
     Active Substance: SOMATROPIN
     Route: 065
     Dates: start: 20241218

REACTIONS (10)
  - Injection site pain [Unknown]
  - Injection site haemorrhage [Unknown]
  - Injection site bruising [Unknown]
  - Circumstance or information capable of leading to medication error [Unknown]
  - Poor quality product administered [Unknown]
  - Product reconstitution quality issue [Unknown]
  - Product preparation issue [Unknown]
  - Liquid product physical issue [Unknown]
  - Needle issue [Unknown]
  - Syringe issue [Unknown]

NARRATIVE: CASE EVENT DATE: 20241218
